FAERS Safety Report 21357365 (Version 1)
Quarter: 2022Q3

REPORT INFORMATION
  Report Type: Report from Study
  Country: US (occurrence: US)
  Receive Date: 20220921
  Receipt Date: 20220921
  Transmission Date: 20221026
  Serious: Yes (Hospitalization)
  Sender: FDA-Public Use
  Company Number: US-TAKEDA-2022TUS045920

PATIENT
  Sex: Female

DRUGS (2)
  1. MARIBAVIR [Suspect]
     Active Substance: MARIBAVIR
     Indication: Cytomegalovirus infection
     Dosage: 400 MILLIGRAM, BID
     Route: 048
     Dates: start: 20220607
  2. MARIBAVIR [Suspect]
     Active Substance: MARIBAVIR
     Indication: Myelodysplastic syndrome

REACTIONS (3)
  - Gait inability [Unknown]
  - Taste disorder [Unknown]
  - Therapy interrupted [Unknown]
